FAERS Safety Report 16808404 (Version 1)
Quarter: 2019Q3

REPORT INFORMATION
  Report Type: Spontaneous
  Country: ES (occurrence: ES)
  Receive Date: 20190916
  Receipt Date: 20190916
  Transmission Date: 20191005
  Serious: Yes (Hospitalization)
  Sender: FDA-Public Use
  Company Number: ES-ROCHE-2405126

PATIENT
  Age: 45 Year
  Sex: Female

DRUGS (3)
  1. OMEPRAZOL [OMEPRAZOLE] [Concomitant]
     Active Substance: OMEPRAZOLE
     Indication: PRODUCT USED FOR UNKNOWN INDICATION
     Dosage: 20 MG, QD
     Route: 048
     Dates: start: 20190529
  2. MONTELUKAST [Concomitant]
     Active Substance: MONTELUKAST SODIUM
     Indication: PRODUCT USED FOR UNKNOWN INDICATION
     Dosage: 10 MG, QD
     Route: 048
     Dates: start: 20190529
  3. OMALIZUMAB. [Suspect]
     Active Substance: OMALIZUMAB
     Indication: TOXIC SKIN ERUPTION
     Route: 065
     Dates: start: 20190712, end: 20190828

REACTIONS (3)
  - Pulmonary function test decreased [Recovering/Resolving]
  - Pruritus [Recovering/Resolving]
  - Rash papular [Recovering/Resolving]

NARRATIVE: CASE EVENT DATE: 201908
